FAERS Safety Report 8308881 (Version 3)
Quarter: 2012Q4

REPORT INFORMATION
  Report Type: 
  Country: US (occurrence: US)
  Receive Date: 20111222
  Receipt Date: 20121018
  Transmission Date: 20130627
  Serious: Yes (Other)
  Sender: FDA-Public Use
  Company Number: US-ASTRAZENECA-2011SE72538

PATIENT
  Age: 33 Year
  Sex: Female

DRUGS (12)
  1. SEROQUEL [Suspect]
     Indication: AFFECTIVE DISORDER
     Route: 048
     Dates: start: 20110606, end: 20110608
  2. SEROQUEL [Suspect]
     Indication: INSOMNIA
     Route: 048
     Dates: start: 20110606, end: 20110608
  3. SEROQUEL [Suspect]
     Indication: AFFECTIVE DISORDER
     Route: 048
     Dates: start: 20110607, end: 20110609
  4. SEROQUEL [Suspect]
     Indication: INSOMNIA
     Route: 048
     Dates: start: 20110607, end: 20110609
  5. SEROQUEL [Suspect]
     Indication: AFFECTIVE DISORDER
     Route: 048
     Dates: start: 20110610, end: 20110627
  6. SEROQUEL [Suspect]
     Indication: INSOMNIA
     Route: 048
     Dates: start: 20110610, end: 20110627
  7. SEROQUEL [Suspect]
     Indication: AFFECTIVE DISORDER
     Route: 048
     Dates: start: 20110627, end: 20110714
  8. SEROQUEL [Suspect]
     Indication: INSOMNIA
     Route: 048
     Dates: start: 20110627, end: 20110714
  9. SEROQUEL [Suspect]
     Indication: AFFECTIVE DISORDER
     Route: 048
     Dates: start: 20110714
  10. SEROQUEL [Suspect]
     Indication: INSOMNIA
     Route: 048
     Dates: start: 20110714
  11. WELLBUTRIN XL [Suspect]
     Indication: AFFECTIVE DISORDER
     Route: 065
     Dates: start: 20110714
  12. WELLBUTRIN XL [Suspect]
     Indication: DEPRESSION
     Route: 065
     Dates: start: 20110714

REACTIONS (4)
  - Exposure during pregnancy [Unknown]
  - Acquired immunodeficiency syndrome [Unknown]
  - Off label use [Unknown]
  - Migraine [Unknown]
